APPROVED DRUG PRODUCT: SODIUM POLYSTYRENE SULFONATE
Active Ingredient: SODIUM POLYSTYRENE SULFONATE
Strength: 15GM/BOT
Dosage Form/Route: POWDER;ORAL, RECTAL
Application: A204071 | Product #002
Applicant: NUVO PHAMACEUTICALS INC
Approved: Nov 28, 2014 | RLD: No | RS: No | Type: RX